FAERS Safety Report 15777103 (Version 4)
Quarter: 2019Q1

REPORT INFORMATION
  Report Type: Spontaneous
  Country: HU (occurrence: HU)
  Receive Date: 20181231
  Receipt Date: 20190306
  Transmission Date: 20190417
  Serious: Yes (Other)
  Sender: FDA-Public Use
  Company Number: HU-PFIZER INC-2018533146

PATIENT
  Age: 21 Year
  Sex: Male

DRUGS (2)
  1. CLINDAMYCIN HCL [Suspect]
     Active Substance: CLINDAMYCIN HYDROCHLORIDE
     Indication: PERITONSILLAR ABSCESS
     Dosage: UNK
  2. CLARITHROMYCIN. [Suspect]
     Active Substance: CLARITHROMYCIN
     Indication: PERITONSILLAR ABSCESS
     Dosage: UNK

REACTIONS (6)
  - Mononucleosis syndrome [Recovered/Resolved]
  - Cytomegalovirus infection [Recovered/Resolved]
  - Leukocytosis [Recovered/Resolved]
  - Infectious mononucleosis [Recovering/Resolving]
  - Lymphocytosis [Recovered/Resolved]
  - Liver function test increased [Recovered/Resolved]
